FAERS Safety Report 14783683 (Version 1)
Quarter: 2018Q2

REPORT INFORMATION
  Report Type: Spontaneous
  Country: US (occurrence: US)
  Receive Date: 20180420
  Receipt Date: 20180420
  Transmission Date: 20180711
  Serious: No
  Sender: FDA-Public Use
  Company Number: US-PERRIGO-17US025460

PATIENT
  Sex: Male

DRUGS (1)
  1. NAPROXEN SODIUM-PSEUDOEPHEDRINE HYDROCHLORIDE [Suspect]
     Active Substance: NAPROXEN SODIUM\PSEUDOEPHEDRINE HYDROCHLORIDE
     Indication: PRODUCT USED FOR UNKNOWN INDICATION
     Dosage: 1 TABLET, TWICE IN 4 HOURS
     Route: 048
     Dates: start: 20170725, end: 20170725

REACTIONS (1)
  - Inappropriate schedule of drug administration [Recovered/Resolved]

NARRATIVE: CASE EVENT DATE: 20170725
